FAERS Safety Report 6689075-7 (Version None)
Quarter: 2010Q2

REPORT INFORMATION
  Report Type: 
  Country: None (occurrence: None)
  Receive Date: 20100409
  Receipt Date: 20100401
  Transmission Date: 20101027
  Serious: Yes (Hospitalization)
  Sender: FDA-Public Use
  Company Number: 2010SP019307

PATIENT
  Age: 1 Day
  Sex: Female

DRUGS (6)
  1. REMERON [Suspect]
     Indication: DRUG EXPOSURE DURING PREGNANCY
     Dosage: TRPL
     Route: 064
  2. ZYPREXA [Suspect]
     Indication: DRUG EXPOSURE DURING PREGNANCY
     Dosage: TRPL
     Route: 064
  3. LITHIOFOR (LITHIUM SULFATE) [Suspect]
     Indication: DRUG EXPOSURE DURING PREGNANCY
     Dosage: TRPL
     Route: 064
  4. OXAZEPAM [Suspect]
     Indication: DRUG EXPOSURE DURING PREGNANCY
     Dosage: TRPL
     Route: 064
  5. ZOLPIDEM TARTRATE [Suspect]
     Indication: DRUG EXPOSURE DURING PREGNANCY
     Dosage: PO
     Route: 048
  6. SEROQUIN (QUETIAPINE FUMARATE) [Suspect]
     Indication: DRUG EXPOSURE DURING PREGNANCY
     Dosage: TRPL
     Route: 064

REACTIONS (4)
  - CAESAREAN SECTION [None]
  - MATERNAL DRUGS AFFECTING FOETUS [None]
  - NEONATAL RESPIRATORY DISTRESS SYNDROME [None]
  - WITHDRAWAL SYNDROME [None]
